FAERS Safety Report 8030282-9 (Version None)
Quarter: 2012Q1

REPORT INFORMATION
  Report Type: 
  Country: None (occurrence: None)
  Receive Date: 20120109
  Receipt Date: 20120103
  Transmission Date: 20120608
  Serious: Yes (Other)
  Sender: FDA-Public Use
  Company Number: PHHY2011AU101951

PATIENT
  Sex: Male

DRUGS (2)
  1. GLEEVEC [Suspect]
     Indication: CHRONIC MYELOID LEUKAEMIA
     Dosage: 400 MG, DAILY
     Route: 048
     Dates: start: 20020101
  2. PANTOPRAZOLE [Concomitant]
     Indication: GASTRITIS
     Dosage: 40 MG, BID
     Route: 048
     Dates: start: 20100101

REACTIONS (2)
  - NEOPLASM MALIGNANT [None]
  - PROSTATE CANCER [None]
